FAERS Safety Report 7313526-8 (Version None)
Quarter: 2011Q1

REPORT INFORMATION
  Report Type: 
  Country: None (occurrence: None)
  Receive Date: 20110225
  Receipt Date: 20110223
  Transmission Date: 20110831
  Serious: Yes (Hospitalization, Other)
  Sender: FDA-Public Use
  Company Number: GB-TEVA-267467ISR

PATIENT
  Age: 67 Year
  Sex: Female

DRUGS (3)
  1. DOXORUBICIN HCL [Suspect]
     Indication: ANGIOSARCOMA
     Dosage: 6 CYCLES.
  2. IFOSFAMIDE [Suspect]
     Indication: ANGIOSARCOMA
     Dosage: 6 CYCLES.
  3. CISPLATIN [Suspect]
     Indication: ANGIOSARCOMA
     Dosage: 6 CYCLES

REACTIONS (1)
  - ANGIOSARCOMA [None]
